FAERS Safety Report 8918828 (Version 1)
Quarter: 2012Q4

REPORT INFORMATION
  Report Type: Spontaneous
  Country: US (occurrence: None)
  Receive Date: 20121115
  Receipt Date: 20121115
  Transmission Date: 20130627
  Serious: Yes (Hospitalization, Other)
  Sender: FDA-Public Use
  Company Number: None

PATIENT
  Age: 34 Year
  Sex: Female

DRUGS (2)
  1. PATANASE [Suspect]
     Indication: NASAL CONGESTION
     Dosage: 2 metered sprays twice daily nasal
     Route: 045
     Dates: start: 20121101, end: 20121112
  2. PATANASE [Suspect]
     Indication: ACUTE SINUSITIS
     Dosage: 2 metered sprays twice daily nasal
     Route: 045
     Dates: start: 20121101, end: 20121112

REACTIONS (4)
  - Swelling face [None]
  - Staphylococcal infection [None]
  - Cellulitis staphylococcal [None]
  - Hypersensitivity [None]
